FAERS Safety Report 16469527 (Version 1)
Quarter: 2019Q3

REPORT INFORMATION
  Report Type: Spontaneous
  Country: GB (occurrence: GB)
  Receive Date: 20190622
  Receipt Date: 20190622
  Transmission Date: 20191004
  Serious: Yes (Other)
  Sender: FDA-Public Use
  Company Number: None

PATIENT
  Age: 17 Year
  Sex: Female

DRUGS (1)
  1. SALICYLIC ACID 2% SOLUTION [Suspect]
     Active Substance: SALICYLIC ACID
     Indication: ACNE
     Dosage: ?          QUANTITY:2 DROP(S);?
     Route: 061
     Dates: start: 20190622, end: 20190622

REACTIONS (2)
  - Application site burn [None]
  - Blister [None]

NARRATIVE: CASE EVENT DATE: 20190622
